FAERS Safety Report 15474283 (Version 1)
Quarter: 2018Q4

REPORT INFORMATION
  Report Type: Spontaneous
  Country: GB (occurrence: GB)
  Receive Date: 20181008
  Receipt Date: 20181008
  Transmission Date: 20190205
  Serious: Yes (Disabling, Other)
  Sender: FDA-Public Use
  Company Number: GB-TEVA-2018-GB-961543

PATIENT
  Age: 22 Year
  Sex: Female

DRUGS (1)
  1. MODAFINIL. [Suspect]
     Active Substance: MODAFINIL
     Indication: SOMNOLENCE
     Route: 048

REACTIONS (3)
  - Somatic delusion [Recovering/Resolving]
  - Trichotillomania [Recovered/Resolved with Sequelae]
  - Dermatillomania [Recovering/Resolving]
